FAERS Safety Report 5719016-8 (Version None)
Quarter: 2008Q2

REPORT INFORMATION
  Report Type: 
  Country: None (occurrence: None)
  Receive Date: 20080425
  Receipt Date: 20080417
  Transmission Date: 20081010
  Serious: Yes (Hospitalization, Other)
  Sender: FDA-Public Use
  Company Number: PHHY2008CA04081

PATIENT
  Age: 86 Year
  Sex: Male

DRUGS (15)
  1. EXELON [Suspect]
     Indication: DEMENTIA ALZHEIMER'S TYPE
     Dosage: 1.5 MG, BID
     Route: 048
     Dates: start: 20070821, end: 20080110
  2. EXELON [Suspect]
     Dosage: 3 MG MORNING+ 1.5 MG EVENING
     Route: 048
     Dates: start: 20080111, end: 20080207
  3. EXELON [Suspect]
     Dosage: 3 MG, BID
     Route: 048
     Dates: start: 20080208
  4. THEO-DUR [Concomitant]
     Dosage: 150 MG, BID
  5. THEO-DUR [Concomitant]
     Dosage: 300 MG, BID
     Dates: start: 20070701
  6. LANOXIN [Concomitant]
     Dosage: 0.125 MG, UNK
     Dates: start: 20070701
  7. TYLENOL [Concomitant]
     Dosage: 650 MG, BID
     Dates: start: 20070701
  8. ASPIRIN [Concomitant]
     Dosage: 80 MG/DAY
     Dates: start: 20070701
  9. PROSCAR [Concomitant]
     Dosage: 5 MG/DAY
     Dates: start: 20070701
  10. XATRAL [Concomitant]
     Dosage: 10 MG/DAY
     Dates: start: 20070701
  11. SENNOSIDE [Concomitant]
     Dosage: 8-10 MG, BID
  12. COLACE [Concomitant]
     Dosage: 100 MG, BID
     Dates: start: 20070701
  13. SPIRIVA [Concomitant]
     Dates: start: 20070701
  14. SEREVENT [Concomitant]
     Dosage: UNK, BID
     Dates: start: 20070701
  15. PULMICORT [Concomitant]
     Dosage: 400,
     Dates: start: 20070701

REACTIONS (4)
  - ASTHENIA [None]
  - BRADYCARDIA [None]
  - EXTRASYSTOLES [None]
  - HYPOTENSION [None]
